FAERS Safety Report 5713193-0 (Version None)
Quarter: 2008Q2

REPORT INFORMATION
  Report Type: 
  Country: None (occurrence: None)
  Receive Date: 20080422
  Receipt Date: 19980915
  Transmission Date: 20081010
  Serious: Yes (Death, Other)
  Sender: FDA-Public Use
  Company Number: AU-ROCHE-17020

PATIENT
  Sex: Male

DRUGS (2)
  1. GANCICLOVIR SODIUM [Suspect]
     Indication: DRUG USE FOR UNKNOWN INDICATION
     Route: 042
     Dates: start: 19870101
  2. GANCICLOVIR SODIUM [Suspect]
     Route: 042
     Dates: start: 19890117, end: 19891006

REACTIONS (2)
  - DEATH [None]
  - MASS [None]
